FAERS Safety Report 7313846-7 (Version None)
Quarter: 2011Q1

REPORT INFORMATION
  Report Type: 
  Country: None (occurrence: None)
  Receive Date: 20110216
  Receipt Date: 20110216
  Transmission Date: 20110831
  Serious: Yes (Hospitalization)
  Sender: FDA-Public Use
  Company Number: None

PATIENT
  Sex: Male
  Weight: 68.9467 kg

DRUGS (7)
  1. BEVACIZUMAB [Suspect]
     Indication: PANCREATIC CARCINOMA
     Dosage: 10 MG/KG 723-740 MG IV
     Route: 042
     Dates: start: 20100913
  2. BEVACIZUMAB [Suspect]
     Indication: PANCREATIC CARCINOMA
     Dosage: 10 MG/KG 723-740 MG IV
     Route: 042
     Dates: start: 20100927
  3. BEVACIZUMAB [Suspect]
     Indication: PANCREATIC CARCINOMA
     Dosage: 10 MG/KG 723-740 MG IV
     Route: 042
     Dates: start: 20101011
  4. BEVACIZUMAB [Suspect]
     Indication: PANCREATIC CARCINOMA
     Dosage: 10 MG/KG 723-740 MG IV
     Route: 042
     Dates: start: 20101025
  5. GEMCITABINE [Suspect]
     Indication: PANCREATIC CARCINOMA
     Dosage: 1500MG/M2 2820-2850MGIV
     Route: 042
     Dates: start: 20100913
  6. GEMCITABINE [Suspect]
     Indication: PANCREATIC CARCINOMA
     Dosage: 1500MG/M2 2820-2850MGIV
     Route: 042
     Dates: start: 20100927
  7. GEMCITABINE [Suspect]
     Indication: PANCREATIC CARCINOMA
     Dosage: 1500MG/M2 2820-2850MGIV
     Route: 042
     Dates: start: 20101011

REACTIONS (6)
  - CHILLS [None]
  - PANCREATIC LEAK [None]
  - ABSCESS [None]
  - ABDOMINAL PAIN [None]
  - POST PROCEDURAL INFECTION [None]
  - CANDIDIASIS [None]
